FAERS Safety Report 16830056 (Version 1)
Quarter: 2019Q3

REPORT INFORMATION
  Report Type: Report from Study
  Country: NL (occurrence: NL)
  Receive Date: 20190919
  Receipt Date: 20190919
  Transmission Date: 20191005
  Serious: Yes (Hospitalization)
  Sender: FDA-Public Use
  Company Number: NL-AMGEN-NLDSL2019150190

PATIENT
  Age: 74 Year
  Sex: Male

DRUGS (9)
  1. ATORVASTATINE [ATORVASTATIN] [Concomitant]
     Active Substance: ATORVASTATIN
     Dosage: 40 MILLIGRAM, QD (1D1T)
  2. DABRAFENIB [Concomitant]
     Active Substance: DABRAFENIB
     Dosage: 75 MILLIGRAM, 2D2C
  3. CLOBETASONA [Concomitant]
     Dosage: 0.5 MG/G, (EMOVATE) 1D
  4. CLOPIDOGREL [Concomitant]
     Active Substance: CLOPIDOGREL BISULFATE
     Dosage: 75 MILLIGRAM, QD (1D 1T)
  5. GLICLAZIDE [Concomitant]
     Active Substance: GLICLAZIDE
     Dosage: 30 MILLIGRAM, 2D1T
  6. TRAMETINIB [Concomitant]
     Active Substance: TRAMETINIB
     Dosage: 2 MILLIGRAM, QD (1D1T)
  7. XGEVA [Suspect]
     Active Substance: DENOSUMAB
     Indication: PROPHYLAXIS
     Dosage: 120 MILLIGRAM (1.7ML), Q4WK
     Route: 065
     Dates: start: 20190614
  8. CETOMACROGOL [Concomitant]
     Active Substance: COSMETICS
     Dosage: 20 PERCENT, 2D
  9. ISOSORBIDEMONONITRAAT [Concomitant]
     Dosage: 30 MILLIGRAM, QD (1D1T)

REACTIONS (1)
  - Chest pain [Unknown]
